FAERS Safety Report 24691018 (Version 2)
Quarter: 2025Q2

REPORT INFORMATION
  Report Type: Spontaneous
  Country: US (occurrence: US)
  Receive Date: 20241203
  Receipt Date: 20250415
  Transmission Date: 20250717
  Serious: No
  Sender: SANOFI AVENTIS
  Company Number: US-SA-2024SA352791

PATIENT
  Age: 33 Year
  Sex: Male

DRUGS (12)
  1. ALPROLIX [Suspect]
     Active Substance: EFTRENONACOG ALFA
     Indication: Factor IX deficiency
     Dosage: 1200 U, QOW
     Route: 042
     Dates: start: 201505
  2. ALPROLIX [Suspect]
     Active Substance: EFTRENONACOG ALFA
     Indication: Factor IX deficiency
     Dosage: 1200 U, QOW
     Route: 042
     Dates: start: 201505
  3. ALPROLIX [Suspect]
     Active Substance: EFTRENONACOG ALFA
     Dosage: 12,000 UNITS(11400-12600)
     Route: 042
  4. ALPROLIX [Suspect]
     Active Substance: EFTRENONACOG ALFA
     Dosage: 12,000 UNITS(11400-12600)
     Route: 042
  5. ALPROLIX [Suspect]
     Active Substance: EFTRENONACOG ALFA
     Dates: start: 20250314, end: 20250314
  6. ALPROLIX [Suspect]
     Active Substance: EFTRENONACOG ALFA
     Dates: start: 20250314, end: 20250314
  7. ALPROLIX [Suspect]
     Active Substance: EFTRENONACOG ALFA
     Dates: start: 20250329, end: 20250329
  8. ALPROLIX [Suspect]
     Active Substance: EFTRENONACOG ALFA
     Dates: start: 20250329, end: 20250329
  9. ALPROLIX [Suspect]
     Active Substance: EFTRENONACOG ALFA
     Dates: start: 20250214, end: 20250214
  10. ALPROLIX [Suspect]
     Active Substance: EFTRENONACOG ALFA
     Dates: start: 20250214, end: 20250214
  11. ALPROLIX [Suspect]
     Active Substance: EFTRENONACOG ALFA
     Dates: start: 20250222, end: 20250222
  12. ALPROLIX [Suspect]
     Active Substance: EFTRENONACOG ALFA
     Dates: start: 20250222, end: 20250222

REACTIONS (3)
  - Haemorrhage [Recovered/Resolved]
  - Limb injury [Recovered/Resolved]
  - Treatment noncompliance [Unknown]

NARRATIVE: CASE EVENT DATE: 20241031
